FAERS Safety Report 7656521-1 (Version None)
Quarter: 2011Q3

REPORT INFORMATION
  Report Type: 
  Country: None (occurrence: None)
  Receive Date: 20110804
  Receipt Date: 20101006
  Transmission Date: 20111222
  Serious: No
  Sender: FDA-Public Use
  Company Number: US-BAUSCH-2010BL005794

PATIENT
  Age: 36 Year
  Sex: Female

DRUGS (3)
  1. OPCON-A [Suspect]
     Indication: DRY EYE
     Route: 047
     Dates: start: 20101005
  2. ONE-A-DAY [Concomitant]
     Route: 048
  3. OPCON-A [Suspect]
     Indication: OFF LABEL USE
     Route: 047
     Dates: start: 20101005

REACTIONS (6)
  - DRY EYE [None]
  - EYE IRRITATION [None]
  - OCULAR HYPERAEMIA [None]
  - WRONG DRUG ADMINISTERED [None]
  - DRUG LABEL CONFUSION [None]
  - LACRIMATION INCREASED [None]
